FAERS Safety Report 5654437-3 (Version None)
Quarter: 2008Q1

REPORT INFORMATION
  Report Type: 
  Country: None (occurrence: None)
  Receive Date: 20080305
  Receipt Date: 20080228
  Transmission Date: 20080703
  Serious: Yes (Disabling, Other)
  Sender: FDA-Public Use
  Company Number: 08022415

PATIENT
  Age: 72 Year
  Sex: Female

DRUGS (4)
  1. FLUOCINONIDE [Suspect]
     Indication: PSORIASIS
     Dosage: TOPICAL
     Route: 061
  2. INSULIN (NEUTRAL INSULIN INJECTION) [Concomitant]
  3. ANTIHYPERTENSIVES [Concomitant]
  4. OTHER ANTI-ASTHMATICS, INHALANTS [Concomitant]

REACTIONS (2)
  - CATARACT [None]
  - VISUAL ACUITY REDUCED [None]
